FAERS Safety Report 20435739 (Version 1)
Quarter: 2022Q1

REPORT INFORMATION
  Report Type: Spontaneous
  Country: US (occurrence: US)
  Receive Date: 20220207
  Receipt Date: 20220207
  Transmission Date: 20220423
  Serious: No
  Sender: FDA-Public Use
  Company Number: US-TEVA-2022-US-2000624

PATIENT
  Sex: Female

DRUGS (2)
  1. COPAXONE [Suspect]
     Active Substance: GLATIRAMER ACETATE
     Dosage: FOR 6YEARS?FORM STRENGTH: UNKNOWN
     Dates: start: 2016
  2. TECFIDERA [Suspect]
     Active Substance: DIMETHYL FUMARATE
     Route: 065

REACTIONS (6)
  - Immediate post-injection reaction [Unknown]
  - Feeling hot [Unknown]
  - Erythema [Unknown]
  - Swelling face [Unknown]
  - Adverse drug reaction [Unknown]
  - Fear [Unknown]

NARRATIVE: CASE EVENT DATE: 20160101
